FAERS Safety Report 7954540-9 (Version None)
Quarter: 2011Q4

REPORT INFORMATION
  Report Type: 
  Country: None (occurrence: None)
  Receive Date: 20111202
  Receipt Date: 20111121
  Transmission Date: 20120403
  Serious: Yes (Hospitalization, Other)
  Sender: FDA-Public Use
  Company Number: PHHY2011CA09581

PATIENT
  Sex: Male

DRUGS (6)
  1. CLOZARIL [Suspect]
     Indication: SCHIZOPHRENIA
     Dosage: 350 MG, QHS
     Route: 048
     Dates: start: 19921005
  2. VINORELBINE [Concomitant]
     Dosage: 32 MG, UNK
  3. CISPLATIN [Concomitant]
     Dosage: 75 MG
     Route: 030
  4. VINORELBINE [Concomitant]
     Dosage: 15 MG, UNK
     Route: 042
  5. CISPLATIN [Concomitant]
     Dosage: 161 MG, UNK
  6. DECAPRYN [Concomitant]
     Dosage: 8 MG, QD
     Route: 048

REACTIONS (2)
  - PNEUMONIA [None]
  - LUNG NEOPLASM MALIGNANT [None]
